FAERS Safety Report 8420891-7 (Version None)
Quarter: 2012Q2

REPORT INFORMATION
  Report Type: 
  Country: None (occurrence: None)
  Receive Date: 20120608
  Receipt Date: 20120604
  Transmission Date: 20120825
  Serious: Yes (Hospitalization, Other)
  Sender: FDA-Public Use
  Company Number: US-PFIZER INC-2009272530

PATIENT
  Sex: Female

DRUGS (1)
  1. CHANTIX [Suspect]
     Indication: SMOKING CESSATION THERAPY
     Dosage: STARTER PACK AND 1MG CONTINUING MAINTENANCE PACK
     Route: 048
     Dates: start: 20070827, end: 20071105

REACTIONS (4)
  - SUICIDE ATTEMPT [None]
  - SUICIDAL BEHAVIOUR [None]
  - INTENTIONAL OVERDOSE [None]
  - MAJOR DEPRESSION [None]
